FAERS Safety Report 21903266 (Version 1)
Quarter: 2023Q1

REPORT INFORMATION
  Report Type: Spontaneous
  Country: US (occurrence: US)
  Receive Date: 20230124
  Receipt Date: 20230124
  Transmission Date: 20230417
  Serious: No
  Sender: FDA-Public Use
  Company Number: US-SANOFI-00919822

PATIENT
  Age: 68 Year
  Sex: Female

DRUGS (3)
  1. TOUJEO [Suspect]
     Active Substance: INSULIN GLARGINE
     Indication: Diabetes mellitus
     Dosage: 110 IU, QD
     Route: 065
     Dates: start: 2012
  2. TOUJEO [Suspect]
     Active Substance: INSULIN GLARGINE
     Dosage: 130 IU, QD
  3. TOUJEO [Suspect]
     Active Substance: INSULIN GLARGINE
     Dosage: 150 IU, QD

REACTIONS (2)
  - Blood glucose abnormal [Unknown]
  - Intentional product use issue [Unknown]
